FAERS Safety Report 7020798-6 (Version None)
Quarter: 2010Q3

REPORT INFORMATION
  Report Type: 
  Country: None (occurrence: None)
  Receive Date: 20100929
  Receipt Date: 20100924
  Transmission Date: 20110219
  Serious: Yes (Other)
  Sender: FDA-Public Use
  Company Number: BR-SANOFI-AVENTIS-2010SA057857

PATIENT
  Sex: Female
  Weight: 50 kg

DRUGS (4)
  1. LANTUS [Suspect]
     Indication: TYPE 1 DIABETES MELLITUS
     Route: 058
     Dates: start: 20050101, end: 20071103
  2. LANTUS [Suspect]
     Route: 058
     Dates: start: 20100715
  3. TACROLIMUS [Concomitant]
     Indication: KIDNEY TRANSPLANT REJECTION
     Route: 048
     Dates: start: 20050101
  4. MYFORTIC [Concomitant]
     Indication: KIDNEY TRANSPLANT REJECTION
     Route: 048
     Dates: start: 20050101

REACTIONS (1)
  - PANCREATIC DISORDER [None]
